FAERS Safety Report 8996845 (Version 1)
Quarter: 2013Q1

REPORT INFORMATION
  Report Type: Report from Study
  Country: GB (occurrence: GB)
  Receive Date: 20130104
  Receipt Date: 20130104
  Transmission Date: 20140127
  Serious: Yes (Hospitalization)
  Sender: FDA-Public Use
  Company Number: GB-ELI_LILLY_AND_COMPANY-GB201212008155

PATIENT
  Age: 66 Year
  Sex: Male

DRUGS (5)
  1. GEMCITABINE HYDROCHLORIDE [Suspect]
     Indication: TRANSITIONAL CELL CARCINOMA
     Dosage: 1200 MG, UNKNOWN
     Route: 042
     Dates: start: 20110920, end: 20120104
  2. SUNITINIB MALATE [Suspect]
     Indication: TRANSITIONAL CELL CARCINOMA
     Dosage: 25 MG, UNKNOWN
     Dates: start: 20110921, end: 20120109
  3. CISPLATIN [Suspect]
     Indication: TRANSITIONAL CELL CARCINOMA
     Dosage: 70 MG/M2, UNKNOWN
     Route: 042
     Dates: start: 20110920
  4. LOSARTAN [Concomitant]
     Dosage: UNK
     Dates: start: 2001
  5. DALTEPARIN [Concomitant]
     Dosage: UNK
     Dates: start: 20110111

REACTIONS (1)
  - Infection [Recovered/Resolved]
